FAERS Safety Report 6066217-8 (Version None)
Quarter: 2009Q1

REPORT INFORMATION
  Report Type: 
  Country: None (occurrence: None)
  Receive Date: 20090205
  Receipt Date: 20090202
  Transmission Date: 20090719
  Serious: Yes (Death, Other)
  Sender: FDA-Public Use
  Company Number: PHHY2009JP03274

PATIENT
  Age: 38 Year
  Sex: Male

DRUGS (4)
  1. CYCLOSPORINE [Suspect]
     Indication: CORD BLOOD TRANSPLANT THERAPY
  2. CYCLOSPORINE [Suspect]
     Indication: PROPHYLAXIS AGAINST GRAFT VERSUS HOST DISEASE
  3. IRRADIATION [Concomitant]
  4. CYCLOPHOSPHAMIDE [Concomitant]

REACTIONS (11)
  - ADENOVIRAL HAEMORRHAGIC CYSTITIS [None]
  - ANURIA [None]
  - BLADDER HYPERTROPHY [None]
  - DYSURIA [None]
  - HAEMATOMA [None]
  - HAEMATURIA [None]
  - HYDRONEPHROSIS [None]
  - PYELOCALIECTASIS [None]
  - RENAL IMPAIRMENT [None]
  - STATUS EPILEPTICUS [None]
  - URETERIC DILATATION [None]
